FAERS Safety Report 25508968 (Version 1)
Quarter: 2025Q3

REPORT INFORMATION
  Report Type: Spontaneous
  Country: CN (occurrence: CN)
  Receive Date: 20250703
  Receipt Date: 20250703
  Transmission Date: 20251020
  Serious: Yes (Other)
  Sender: BAXTER
  Company Number: None

PATIENT
  Age: 18 Year
  Sex: Male
  Weight: 58 kg

DRUGS (4)
  1. CYCLOPHOSPHAMIDE [Suspect]
     Active Substance: CYCLOPHOSPHAMIDE
     Indication: Acute lymphocytic leukaemia
     Dosage: 1 G, 1 IN 14 DAYS, INJECTION IN PUMP
     Route: 065
     Dates: start: 20250517, end: 20250531
  2. SODIUM CHLORIDE [Suspect]
     Active Substance: SODIUM CHLORIDE
     Dosage: 500 ML, EVERY 2 WK WITH CYCLOPHOSPHAMIDE
     Route: 065
     Dates: start: 20250517, end: 20250531
  3. SODIUM CHLORIDE [Suspect]
     Active Substance: SODIUM CHLORIDE
     Dosage: 100 ML, 1X A WEEK, 0.9%, WITH VINCRISTINE SULFATE
     Route: 065
     Dates: start: 20250517, end: 20250531
  4. VINCRISTINE SULFATE [Suspect]
     Active Substance: VINCRISTINE SULFATE
     Indication: Acute lymphocytic leukaemia
     Dosage: 2 MG, 1 IN 7 DAYS, INJECTION IN PUMP
     Route: 065
     Dates: start: 20250517, end: 20250531

REACTIONS (2)
  - Myelosuppression [Recovering/Resolving]
  - Cytopenia [Unknown]

NARRATIVE: CASE EVENT DATE: 20250604
